FAERS Safety Report 9664053 (Version 1)
Quarter: 2013Q4

REPORT INFORMATION
  Report Type: Spontaneous
  Country: US (occurrence: None)
  Receive Date: 20131030
  Receipt Date: 20131030
  Transmission Date: 20140711
  Serious: Yes (Disabling, Other)
  Sender: FDA-Public Use
  Company Number: None

PATIENT
  Age: 70 Year
  Sex: Female
  Weight: 58.97 kg

DRUGS (1)
  1. KETAMINE [Suspect]
     Indication: COLONOSCOPY
     Dosage: OVER 23 MIN
     Route: 042
     Dates: start: 20130104

REACTIONS (6)
  - Delirium [None]
  - Nausea [None]
  - Headache [None]
  - Insomnia [None]
  - Depression [None]
  - Nervous system disorder [None]
